FAERS Safety Report 13786939 (Version 1)
Quarter: 2017Q3

REPORT INFORMATION
  Report Type: Spontaneous
  Country: US (occurrence: US)
  Receive Date: 20170725
  Receipt Date: 20170725
  Transmission Date: 20171127
  Serious: No
  Sender: FDA-Public Use
  Company Number: US-TEVA-759795ACC

PATIENT
  Sex: Female

DRUGS (1)
  1. ORAL BACLOFEN [Suspect]
     Active Substance: BACLOFEN
     Dosage: 120 MILLIGRAM DAILY;
     Route: 048
     Dates: start: 20161025

REACTIONS (1)
  - Somnolence [Unknown]
